FAERS Safety Report 8994901 (Version 2)
Quarter: 2013Q1

REPORT INFORMATION
  Report Type: Spontaneous
  Country: US (occurrence: US)
  Receive Date: 20130102
  Receipt Date: 20130204
  Transmission Date: 20140127
  Serious: Yes (Other)
  Sender: FDA-Public Use
  Company Number: US-AMGEN-USASP2012078125

PATIENT
  Age: 49 Year
  Sex: Female
  Weight: 75.74 kg

DRUGS (8)
  1. ENBREL [Suspect]
     Indication: PSORIASIS
     Dosage: 50 MG, QWK
     Route: 058
     Dates: start: 20030205, end: 20121113
  2. XANAX [Concomitant]
     Dosage: UNK
  3. XINFLEX [Concomitant]
     Dosage: UNK
  4. MIRALAX                            /00754501/ [Concomitant]
     Dosage: UNK
  5. AMBRON                             /00546002/ [Concomitant]
     Dosage: UNK
  6. CELEXA                             /00582602/ [Concomitant]
     Dosage: UNK
  7. TACLONEX [Concomitant]
     Dosage: UNK
  8. ZANAFLEX [Concomitant]
     Dosage: UNK

REACTIONS (1)
  - Malignant melanoma stage III [Not Recovered/Not Resolved]
